FAERS Safety Report 6740248-4 (Version None)
Quarter: 2010Q2

REPORT INFORMATION
  Report Type: 
  Country: None (occurrence: None)
  Receive Date: 20100525
  Receipt Date: 20100521
  Transmission Date: 20101027
  Serious: Yes (Other)
  Sender: FDA-Public Use
  Company Number: B0657081A

PATIENT
  Age: 32 Year
  Sex: Male

DRUGS (1)
  1. ALLI [Suspect]
     Dosage: 2CAP PER DAY
     Route: 048
     Dates: start: 20100501, end: 20100501

REACTIONS (1)
  - HAEMATOCHEZIA [None]
